FAERS Safety Report 9766879 (Version 1)
Quarter: 2013Q4

REPORT INFORMATION
  Report Type: Spontaneous
  Country: US (occurrence: US)
  Receive Date: 20131217
  Receipt Date: 20131217
  Transmission Date: 20140711
  Serious: No
  Sender: FDA-Public Use
  Company Number: US-GLAXOSMITHKLINE-A1034240A

PATIENT
  Sex: Female

DRUGS (1)
  1. VOTRIENT [Suspect]
     Indication: PRODUCT USED FOR UNKNOWN INDICATION
     Dosage: 200MG UNKNOWN
     Route: 065
     Dates: start: 20130208, end: 20130318

REACTIONS (6)
  - Weight decreased [Unknown]
  - Dehydration [Unknown]
  - Renal disorder [Unknown]
  - Chromaturia [Unknown]
  - Decreased appetite [Unknown]
  - Treatment failure [Unknown]
